FAERS Safety Report 8400114-5 (Version None)
Quarter: 2012Q2

REPORT INFORMATION
  Report Type: 
  Country: None (occurrence: None)
  Receive Date: 20120531
  Receipt Date: 20120529
  Transmission Date: 20120825
  Serious: Yes (Other)
  Sender: FDA-Public Use
  Company Number: JP-PFIZER INC-2012068718

PATIENT
  Age: 66 Year
  Sex: Female

DRUGS (6)
  1. FUNGUARD [Suspect]
     Dosage: 100 MG, DAILY
     Route: 041
     Dates: start: 20120214, end: 20120221
  2. LIPITOR [Suspect]
     Dosage: 10 MG, UNK
     Route: 048
     Dates: start: 20120210, end: 20120213
  3. ALPROSTADIL [Concomitant]
     Dosage: UNK
     Dates: start: 20120213, end: 20120220
  4. MEROPENEM [Concomitant]
     Dosage: UNK
     Route: 051
     Dates: start: 20120212, end: 20120216
  5. VANCOMYCIN [Concomitant]
     Dosage: UNK
     Route: 051
     Dates: start: 20120211, end: 20120217
  6. LIPITOR [Suspect]
     Dosage: 10 MG, UNK
     Route: 048
     Dates: start: 20120220

REACTIONS (2)
  - BLOOD ALKALINE PHOSPHATASE INCREASED [None]
  - GAMMA-GLUTAMYLTRANSFERASE INCREASED [None]
